FAERS Safety Report 7552412-5 (Version None)
Quarter: 2011Q2

REPORT INFORMATION
  Report Type: 
  Country: None (occurrence: None)
  Receive Date: 20110616
  Receipt Date: 20110607
  Transmission Date: 20111010
  Serious: Yes (Death, Life-Threatening, Hospitalization)
  Sender: FDA-Public Use
  Company Number: FR-CEPHALON-2011002931

PATIENT
  Sex: Male
  Weight: 54 kg

DRUGS (17)
  1. CLONAZEPAM [Concomitant]
  2. ALIMTA [Suspect]
     Route: 042
     Dates: start: 20110117, end: 20110207
  3. LYRICA [Concomitant]
  4. FORLAX [Concomitant]
  5. RABEPRAZOLE SODIUM [Suspect]
     Route: 048
  6. DURAGESIC-100 [Concomitant]
  7. KETOPROFEN [Concomitant]
  8. PREDNISONE [Concomitant]
  9. EFFEXOR [Concomitant]
  10. CRESTOR [Concomitant]
  11. ASPIRIN [Concomitant]
  12. SPECIALFOLDINE [Concomitant]
  13. FENTANYL CITRATE [Suspect]
     Indication: CANCER PAIN
     Route: 002
  14. BRICANYL [Concomitant]
  15. RABEPRAZOLE SODIUM [Concomitant]
  16. ELOXATIN [Suspect]
     Route: 042
     Dates: start: 20110117, end: 20110207
  17. PERISTALTINE [Concomitant]

REACTIONS (1)
  - SEPTIC SHOCK [None]
